FAERS Safety Report 17053168 (Version 1)
Quarter: 2019Q4

REPORT INFORMATION
  Report Type: Spontaneous
  Country: US (occurrence: US)
  Receive Date: 20191022
  Receipt Date: 20191022
  Transmission Date: 20200122
  Serious: Yes (Hospitalization)
  Sender: FDA-Public Use
  Company Number: None

PATIENT
  Age: 62 Year
  Sex: Female

DRUGS (12)
  1. CRANBERRY. [Concomitant]
     Active Substance: CRANBERRY
  2. DULOXETINE. [Concomitant]
     Active Substance: DULOXETINE
  3. MYRBERTRIQ [Concomitant]
  4. VIT-PLUS E [Concomitant]
  5. CYMBALTA [Concomitant]
     Active Substance: DULOXETINE HYDROCHLORIDE
  6. BETA CAROTEN [Concomitant]
  7. CRUSH VIT C [Concomitant]
  8. DALFAMPRIDINE, 10MG [Suspect]
     Active Substance: DALFAMPRIDINE
     Indication: MULTIPLE SCLEROSIS
     Dosage: ?          OTHER FREQUENCY:QD X2;?
     Route: 048
     Dates: start: 20190810
  9. ALENDRONATE [Concomitant]
     Active Substance: ALENDRONATE SODIUM
  10. BACLOFEN. [Concomitant]
     Active Substance: BACLOFEN
  11. HYDROXYZ HCL [Concomitant]
     Active Substance: HYDROXYZINE HYDROCHLORIDE
  12. CALCIUM [Concomitant]
     Active Substance: CALCIUM

REACTIONS (2)
  - Hypersensitivity [None]
  - Drug hypersensitivity [None]

NARRATIVE: CASE EVENT DATE: 20191002
